FAERS Safety Report 6373052-X (Version None)
Quarter: 2009Q3

REPORT INFORMATION
  Report Type: 
  Country: None (occurrence: None)
  Receive Date: 20090924
  Receipt Date: 20090611
  Transmission Date: 20100115
  Serious: No
  Sender: FDA-Public Use
  Company Number: US-ASTRAZENECA-2009UW03709

PATIENT
  Age: 47 Year
  Sex: Male
  Weight: 111.1 kg

DRUGS (6)
  1. SEROQUEL [Suspect]
     Indication: BIPOLAR DISORDER
     Dosage: 150/600 MG
     Route: 048
     Dates: start: 20001025, end: 20020719
  2. SEROQUEL [Suspect]
     Indication: DEPRESSION
     Dosage: 150/600 MG
     Route: 048
     Dates: start: 20001025, end: 20020719
  3. ABILIFY [Concomitant]
     Dates: start: 20020101, end: 20071101
  4. HALDOL [Concomitant]
     Dates: start: 19870101
  5. RISPERDAL [Concomitant]
     Dates: start: 19970101
  6. ZYPREXA [Concomitant]
     Dates: start: 19980101

REACTIONS (2)
  - OBESITY [None]
  - TYPE 2 DIABETES MELLITUS [None]
